FAERS Safety Report 4564169-0 (Version None)
Quarter: 2005Q1

REPORT INFORMATION
  Report Type: 
  Country: None (occurrence: None)
  Receive Date: 20050126
  Receipt Date: 20050113
  Transmission Date: 20050727
  Serious: Yes (Death)
  Sender: FDA-Public Use
  Company Number: 2005013809

PATIENT
  Age: 45 Year
  Sex: Male
  Weight: 80 kg

DRUGS (5)
  1. CELEBREX [Suspect]
     Indication: OSTEOARTHRITIS
     Dosage: 200 MG (100 MG, 2 IN 1 D), ORAL
     Route: 048
     Dates: start: 20041102
  2. MELOXICAM [Suspect]
     Indication: OSTEOARTHRITIS
     Dosage: (15 MG), ORAL
     Route: 048
     Dates: start: 20040810
  3. NAPROXEN [Concomitant]
  4. HYALURONATE SODIUM (HYALURONATE SODIUM) [Concomitant]
  5. CAPSAICIN (CAPSAICIN) [Concomitant]

REACTIONS (1)
  - MYOCARDIAL INFARCTION [None]
